FAERS Safety Report 6910691-9 (Version None)
Quarter: 2010Q3

REPORT INFORMATION
  Report Type: 
  Country: None (occurrence: None)
  Receive Date: 20100806
  Receipt Date: 20100729
  Transmission Date: 20110219
  Serious: Yes (Death)
  Sender: FDA-Public Use
  Company Number: AR-ROCHE-718177

PATIENT
  Sex: Female

DRUGS (2)
  1. CAPECITABINE [Suspect]
     Indication: GALLBLADDER CANCER
     Dosage: FREQUENCY:DAILY
     Route: 048
     Dates: start: 20100323, end: 20100412
  2. OXALIPLATINO [Concomitant]
     Indication: GALLBLADDER CANCER
     Route: 065
     Dates: end: 20100412

REACTIONS (3)
  - DIARRHOEA [None]
  - MALIGNANT NEOPLASM PROGRESSION [None]
  - PALMAR-PLANTAR ERYTHRODYSAESTHESIA SYNDROME [None]
